FAERS Safety Report 16024876 (Version 1)
Quarter: 2019Q1

REPORT INFORMATION
  Report Type: Spontaneous
  Country: JP (occurrence: JP)
  Receive Date: 20190301
  Receipt Date: 20190301
  Transmission Date: 20190418
  Serious: Yes (Hospitalization)
  Sender: FDA-Public Use
  Company Number: JP-TAKEDA-2019TUS010815

PATIENT
  Age: 83 Year
  Sex: Male
  Weight: 52 kg

DRUGS (13)
  1. VELCADE [Suspect]
     Active Substance: BORTEZOMIB
     Dosage: 2.1 MILLIGRAM
     Route: 058
     Dates: start: 20181221, end: 20181221
  2. LENADEX [Concomitant]
     Active Substance: DEXAMETHASONE ACETATE
     Dosage: 4 MILLIGRAM, QD
     Route: 048
     Dates: start: 20181228, end: 20181229
  3. VELCADE [Suspect]
     Active Substance: BORTEZOMIB
     Dosage: 2.1 MILLIGRAM
     Route: 058
     Dates: start: 20181225, end: 20181225
  4. TAMSULOSIN HYDROCHLORIDE. [Concomitant]
     Active Substance: TAMSULOSIN HYDROCHLORIDE
     Dosage: UNK
     Route: 048
  5. FEBURIC [Concomitant]
     Active Substance: FEBUXOSTAT
     Dosage: 20 MILLIGRAM, QD
     Route: 048
     Dates: start: 20181219, end: 20181225
  6. LENADEX [Concomitant]
     Active Substance: DEXAMETHASONE ACETATE
     Dosage: 4 MILLIGRAM, QD
     Route: 048
     Dates: start: 20181218, end: 20181219
  7. LENADEX [Concomitant]
     Active Substance: DEXAMETHASONE ACETATE
     Dosage: 4 MILLIGRAM, QD
     Route: 048
     Dates: start: 20181225, end: 20181226
  8. NEXIUM [Concomitant]
     Active Substance: ESOMEPRAZOLE MAGNESIUM
     Dosage: 20 MILLIGRAM, QD
     Route: 048
     Dates: start: 20181218
  9. DAIPHEN [Concomitant]
     Active Substance: SULFAMETHOXAZOLE\TRIMETHOPRIM
     Dosage: UNK
     Route: 048
     Dates: start: 20181218
  10. VELCADE [Suspect]
     Active Substance: BORTEZOMIB
     Indication: PLASMA CELL MYELOMA
     Dosage: 2.1 MILLIGRAM
     Route: 058
     Dates: start: 20181218, end: 20181218
  11. VELCADE [Suspect]
     Active Substance: BORTEZOMIB
     Dosage: 2.1 MILLIGRAM
     Route: 058
     Dates: start: 20181228
  12. ELCITONIN [Concomitant]
     Active Substance: ELCATONIN
     Dosage: UNK
     Route: 065
     Dates: start: 20181217, end: 20181219
  13. LENADEX [Concomitant]
     Active Substance: DEXAMETHASONE ACETATE
     Dosage: 4 MILLIGRAM, QD
     Route: 048
     Dates: start: 20181221, end: 20181222

REACTIONS (2)
  - Rash [Recovered/Resolved]
  - Enanthema [Recovered/Resolved]

NARRATIVE: CASE EVENT DATE: 20190101
